FAERS Safety Report 7409487-3 (Version None)
Quarter: 2011Q2

REPORT INFORMATION
  Report Type: 
  Country: None (occurrence: None)
  Receive Date: 20110412
  Receipt Date: 20110407
  Transmission Date: 20111010
  Serious: Yes (Other)
  Sender: FDA-Public Use
  Company Number: US-CEPHALON-2009009326

PATIENT
  Sex: Female
  Weight: 54 kg

DRUGS (6)
  1. KLONOPIN [Concomitant]
     Indication: INSOMNIA
     Route: 048
     Dates: start: 20090101
  2. PROVIGIL [Suspect]
     Indication: FATIGUE
     Route: 048
     Dates: start: 20090803
  3. SYMBICORT [Concomitant]
     Indication: ASTHMA
     Dates: start: 20090701
  4. LEVAQUIN [Concomitant]
     Indication: INFECTION
     Route: 048
     Dates: start: 20090701
  5. PROTONIX [Concomitant]
     Indication: GASTRIC PH DECREASED
     Route: 048
     Dates: start: 20040101
  6. VIVAGLOBIN INFUSION [Concomitant]
     Indication: IMMUNODEFICIENCY
     Dates: start: 20081101

REACTIONS (1)
  - VASCULITIS [None]
